FAERS Safety Report 20844277 (Version 4)
Quarter: 2022Q3

REPORT INFORMATION
  Report Type: Spontaneous
  Country: US (occurrence: US)
  Receive Date: 20220518
  Receipt Date: 20220808
  Transmission Date: 20221026
  Serious: Yes (Other)
  Sender: FDA-Public Use
  Company Number: US-PFIZER INC-202200668680

PATIENT
  Age: 42 Year
  Sex: Male

DRUGS (1)
  1. TOFACITINIB [Suspect]
     Active Substance: TOFACITINIB
     Indication: Erythema elevatum diutinum
     Dosage: UNK
     Dates: start: 2019

REACTIONS (6)
  - Lymphomatoid papulosis [Recovering/Resolving]
  - Periorbital inflammation [Recovering/Resolving]
  - Conjunctival hyperaemia [Recovering/Resolving]
  - Off label use [Unknown]
  - Skin lesion [Recovering/Resolving]
  - Inguinal hernia [Unknown]
